FAERS Safety Report 6982146-7 (Version None)
Quarter: 2010Q3

REPORT INFORMATION
  Report Type: 
  Country: None (occurrence: None)
  Receive Date: 20100914
  Receipt Date: 20091203
  Transmission Date: 20110219
  Serious: No
  Sender: FDA-Public Use
  Company Number: US-PFIZER INC-2009306733

PATIENT
  Sex: Male
  Weight: 104 kg

DRUGS (9)
  1. LYRICA [Suspect]
     Indication: NEURALGIA
     Dosage: 150 MG, 2X/DAY
     Route: 048
     Dates: start: 20091117
  2. XANAX [Concomitant]
     Indication: ANXIETY
     Dosage: 1 MG, 3X/DAY
     Route: 048
     Dates: start: 20040101
  3. XANAX [Concomitant]
     Indication: DEPRESSION
  4. FENTANYL CITRATE [Concomitant]
     Indication: BACK PAIN
     Dosage: 100 UG, EVERY 48 HOURS
     Route: 062
  5. FENTANYL CITRATE [Concomitant]
     Indication: ARTHRALGIA
  6. PERCOCET [Concomitant]
     Indication: BACK PAIN
     Dosage: 5/325 MG ONE TABLET DAILY
     Route: 048
  7. NEXIUM [Concomitant]
     Indication: GASTROOESOPHAGEAL REFLUX DISEASE
     Dosage: 3 MG, 1X/DAY
     Route: 048
     Dates: start: 20090801
  8. METHOCARBAMOL [Concomitant]
     Indication: MUSCLE SPASMS
     Dosage: 750 MG, 3X/DAY
     Route: 048
  9. LISINOPRIL [Concomitant]
     Indication: HYPERTENSION
     Dosage: 10 MG, 1X/DAY
     Route: 048

REACTIONS (1)
  - NEURALGIA [None]
